FAERS Safety Report 6983619-3 (Version None)
Quarter: 2010Q3

REPORT INFORMATION
  Report Type: 
  Country: None (occurrence: None)
  Receive Date: 20100914
  Receipt Date: 20081103
  Transmission Date: 20110219
  Serious: No
  Sender: FDA-Public Use
  Company Number: US-WYE-H06663808

PATIENT
  Age: 64 Year
  Sex: Female
  Weight: 59.93 kg

DRUGS (6)
  1. ADVIL LIQUI-GELS [Suspect]
     Indication: NEUROPATHY PERIPHERAL
     Route: 048
     Dates: start: 20081101, end: 20081102
  2. ADVIL LIQUI-GELS [Interacting]
     Indication: PAIN IN EXTREMITY
  3. POTASSIUM [Concomitant]
  4. METOPROLOL SUCCINATE [Concomitant]
  5. DIOVAN [Concomitant]
  6. HYDROCHLOROTHIAZIDE [Interacting]

REACTIONS (8)
  - ABDOMINAL DISTENSION [None]
  - CONDITION AGGRAVATED [None]
  - DRUG INTERACTION [None]
  - FLUID RETENTION [None]
  - HYPERTENSION [None]
  - RASH [None]
  - SWELLING FACE [None]
  - WEIGHT INCREASED [None]
